FAERS Safety Report 9024442 (Version 2)
Quarter: 2013Q2

REPORT INFORMATION
  Report Type: Spontaneous
  Country: RU (occurrence: RU)
  Receive Date: 20130121
  Receipt Date: 20130411
  Transmission Date: 20140414
  Serious: Yes (Other)
  Sender: FDA-Public Use
  Company Number: PHHY2012RU125066

PATIENT
  Sex: Female

DRUGS (1)
  1. ACLASTA [Suspect]
     Route: 042

REACTIONS (1)
  - Upper limb fracture [Unknown]
